FAERS Safety Report 11890363 (Version 1)
Quarter: 2016Q1

REPORT INFORMATION
  Report Type: Report from Study
  Country: US (occurrence: US)
  Receive Date: 20160105
  Receipt Date: 20160105
  Transmission Date: 20160526
  Serious: Yes (Death, Hospitalization)
  Sender: FDA-Public Use
  Company Number: US-ACTELION-A-US2015-128039

PATIENT
  Age: 63 Year
  Sex: Male

DRUGS (8)
  1. MACITENTAN [Suspect]
     Active Substance: MACITENTAN
     Indication: PULMONARY ARTERIAL HYPERTENSION
     Dosage: UNK, QD
     Route: 048
     Dates: start: 20150723
  2. XARELTO [Concomitant]
     Active Substance: RIVAROXABAN
     Dosage: DQD
  3. SYMBICORT [Concomitant]
     Active Substance: BUDESONIDE\FORMOTEROL FUMARATE DIHYDRATE
     Dosage: 160-4.5 MCG/ACT, AS DIRECTED
  4. ASPIRIN. [Concomitant]
     Active Substance: ASPIRIN
     Dosage: 325 MG, QD
  5. PROAIR HFA [Concomitant]
     Active Substance: ALBUTEROL SULFATE
     Dosage: 108 MCG (90 BASE), PRN
  6. ENALAPRIL MALEATE. [Concomitant]
     Active Substance: ENALAPRIL MALEATE
     Dosage: 5 MG, QD
  7. PROCARDIA [Concomitant]
     Active Substance: NIFEDIPINE
     Dosage: 30 MG, QD
  8. SPIRIVA [Concomitant]
     Active Substance: TIOTROPIUM BROMIDE MONOHYDRATE
     Dosage: 2.5 MCG/ACT, QD

REACTIONS (9)
  - Pulmonary hypertension [Fatal]
  - Respiratory distress [Recovering/Resolving]
  - Hepatic cirrhosis [Fatal]
  - Hepatocellular carcinoma [Fatal]
  - Chronic obstructive pulmonary disease [Fatal]
  - Dyspnoea [Recovering/Resolving]
  - Hepatitis C [Fatal]
  - Oxygen saturation decreased [Recovering/Resolving]
  - Disease progression [Fatal]

NARRATIVE: CASE EVENT DATE: 20151119
